FAERS Safety Report 23555001 (Version 1)
Quarter: 2024Q1

REPORT INFORMATION
  Report Type: Spontaneous
  Country: US (occurrence: None)
  Receive Date: 20240222
  Receipt Date: 20240222
  Transmission Date: 20240410
  Serious: Yes (Other)
  Sender: FDA-Public Use
  Company Number: None

PATIENT
  Age: 68 Year
  Sex: Male
  Weight: 83.25 kg

DRUGS (2)
  1. PRALUENT [Suspect]
     Active Substance: ALIROCUMAB
     Indication: Hypertriglyceridaemia
     Dosage: OTHER FREQUENCY : EVERY 2 WEEK;?
  2. ROSUVASTATIN [Suspect]
     Active Substance: ROSUVASTATIN

REACTIONS (2)
  - Product substitution issue [None]
  - Blood triglycerides increased [None]

NARRATIVE: CASE EVENT DATE: 20240208
